FAERS Safety Report 17513951 (Version 1)
Quarter: 2020Q1

REPORT INFORMATION
  Report Type: Report from Study
  Country: CL (occurrence: CL)
  Receive Date: 20200306
  Receipt Date: 20200306
  Transmission Date: 20200409
  Serious: Yes (Hospitalization, Other)
  Sender: FDA-Public Use
  Company Number: NVSC2019CL018877

PATIENT
  Age: 4 Year
  Sex: Female
  Weight: 14 kg

DRUGS (3)
  1. CANAKINUMAB. [Suspect]
     Active Substance: CANAKINUMAB
     Dosage: 4 MG/KG, EVERY 8 WEEKS
     Route: 058
     Dates: start: 20190823
  2. CANAKINUMAB. [Suspect]
     Active Substance: CANAKINUMAB
     Indication: MUCKLE-WELLS SYNDROME
     Dosage: 4 MG/KG
     Route: 058
     Dates: start: 20190628
  3. CANAKINUMAB. [Suspect]
     Active Substance: CANAKINUMAB
     Dosage: 4 MG/KG
     Route: 065
     Dates: start: 20200206

REACTIONS (11)
  - Intestinal perforation [Unknown]
  - Pyrexia [Unknown]
  - Abdominal pain [Unknown]
  - Abdominal pain [Recovered/Resolved]
  - Gastroenteritis viral [Recovered/Resolved]
  - Nasal congestion [Recovered/Resolved]
  - Peritonitis [Unknown]
  - Colitis [Unknown]
  - Vomiting [Unknown]
  - Pyrexia [Recovered/Resolved]
  - Abdominal distension [Unknown]

NARRATIVE: CASE EVENT DATE: 20190926
